FAERS Safety Report 6342154-6 (Version None)
Quarter: 2009Q3

REPORT INFORMATION
  Report Type: 
  Country: None (occurrence: None)
  Receive Date: 20090903
  Receipt Date: 20090903
  Transmission Date: 20100115
  Serious: Yes (Other)
  Sender: FDA-Public Use
  Company Number: None

PATIENT
  Age: 51 Year
  Sex: Female
  Weight: 145.151 kg

DRUGS (3)
  1. LEVAQUIN [Suspect]
     Indication: MASTITIS
     Dosage: 500MG 2X DAY ORAL
     Route: 048
     Dates: start: 19991001, end: 19991201
  2. CIPRO [Suspect]
     Indication: PNEUMONIA
     Dosage: 500MG 2X DAY ORAL
     Route: 048
     Dates: start: 20090401, end: 20090408
  3. CIPRO [Suspect]
     Indication: PNEUMONIA
     Dosage: 500MG 2X DAY ORAL
     Route: 048
     Dates: start: 20090410, end: 20090417

REACTIONS (3)
  - INFLAMMATION [None]
  - ROTATOR CUFF SYNDROME [None]
  - TENDON RUPTURE [None]
